FAERS Safety Report 17260743 (Version 6)
Quarter: 2021Q2

REPORT INFORMATION
  Report Type: Spontaneous
  Country: CA (occurrence: CA)
  Receive Date: 20200113
  Receipt Date: 20210519
  Transmission Date: 20210716
  Serious: Yes (Other)
  Sender: FDA-Public Use
  Company Number: CA-PFIZER INC-2019354389

PATIENT
  Age: 30 Year
  Sex: Male

DRUGS (6)
  1. XELJANZ [Suspect]
     Active Substance: TOFACITINIB CITRATE
     Indication: ENTERITIS
  2. XELJANZ [Suspect]
     Active Substance: TOFACITINIB CITRATE
     Indication: INTESTINAL ANASTOMOSIS
  3. XELJANZ [Suspect]
     Active Substance: TOFACITINIB CITRATE
     Indication: PROCTOCOLECTOMY
     Dosage: 5 MG, 2X/DAY
     Route: 048
     Dates: start: 2020
  4. XELJANZ [Suspect]
     Active Substance: TOFACITINIB CITRATE
     Indication: COLITIS ULCERATIVE
  5. FENTANYL. [Concomitant]
     Active Substance: FENTANYL
     Dosage: 50 UG
     Route: 042
     Dates: start: 20200106, end: 20200106
  6. XELJANZ [Suspect]
     Active Substance: TOFACITINIB CITRATE
     Indication: COLITIS
     Dosage: 10 MG, 2X/DAY, (BID)
     Route: 048
     Dates: start: 20190606, end: 2020

REACTIONS (5)
  - Therapeutic product effect incomplete [Unknown]
  - Crohn^s disease [Unknown]
  - Anal stenosis [Unknown]
  - Product dose omission in error [Unknown]
  - Condition aggravated [Unknown]
